FAERS Safety Report 19594914 (Version 4)
Quarter: 2021Q3

REPORT INFORMATION
  Report Type: Spontaneous
  Country: US (occurrence: US)
  Receive Date: 20210722
  Receipt Date: 20210901
  Transmission Date: 20211014
  Serious: No
  Sender: FDA-Public Use
  Company Number: US-PFIZER INC-2021757449

PATIENT
  Age: 2 Year
  Sex: Male
  Weight: 19.5 kg

DRUGS (2)
  1. GENOTROPIN [Suspect]
     Active Substance: SOMATROPIN
     Indication: PRADER-WILLI SYNDROME
     Dosage: 1 MG, DAILY (ADMINISTER 0.2ML(1MG) A ONCE A DAY)
     Dates: start: 20210611
  2. GENOTROPIN [Suspect]
     Active Substance: SOMATROPIN
     Dosage: THE DOSE GIVEN IS 0.2 MG DAILY WHEN THE PATIENT SHOULD BE ON 1.0 MG DAILY

REACTIONS (6)
  - Circumstance or information capable of leading to medication error [Unknown]
  - Device physical property issue [Unknown]
  - Underdose [Unknown]
  - Drug dose omission by device [Unknown]
  - Product label confusion [Unknown]
  - Wrong technique in device usage process [Unknown]

NARRATIVE: CASE EVENT DATE: 20210622
